FAERS Safety Report 7251410-9 (Version None)
Quarter: 2011Q1

REPORT INFORMATION
  Report Type: 
  Country: None (occurrence: None)
  Receive Date: 20110128
  Receipt Date: 20110119
  Transmission Date: 20110831
  Serious: Yes (Other)
  Sender: FDA-Public Use
  Company Number: US-ASTRAZENECA-2011SE03175

PATIENT
  Age: 63 Year
  Sex: Female
  Weight: 95.3 kg

DRUGS (4)
  1. SEROQUEL [Suspect]
     Indication: NERVOUSNESS
     Route: 048
     Dates: start: 20060119
  2. MIRTAZAPINE [Concomitant]
  3. DOXEPIN HCL [Concomitant]
  4. AMBIEN [Concomitant]

REACTIONS (2)
  - LOWER LIMB FRACTURE [None]
  - FALL [None]
